FAERS Safety Report 25868234 (Version 1)
Quarter: 2025Q4

REPORT INFORMATION
  Report Type: Spontaneous
  Country: US (occurrence: US)
  Receive Date: 20251001
  Receipt Date: 20251001
  Transmission Date: 20260117
  Serious: No
  Sender: ROCHE
  Company Number: US-ROCHE-10000400381

PATIENT
  Sex: Male

DRUGS (3)
  1. XOLAIR [Suspect]
     Active Substance: OMALIZUMAB
     Indication: Asthma
     Route: 058
     Dates: start: 202406
  2. FASENRA [Concomitant]
     Active Substance: BENRALIZUMAB
  3. VIOS LC AEROSOL DELIV SYST [Concomitant]

REACTIONS (2)
  - Off label use [Unknown]
  - No adverse event [Unknown]
